FAERS Safety Report 7623678-8 (Version None)
Quarter: 2011Q3

REPORT INFORMATION
  Report Type: 
  Country: None (occurrence: None)
  Receive Date: 20110720
  Receipt Date: 20110708
  Transmission Date: 20111222
  Serious: Yes (Hospitalization)
  Sender: FDA-Public Use
  Company Number: US-CELGENEUS-163-21880-11012892

PATIENT
  Sex: Male
  Weight: 100.79 kg

DRUGS (31)
  1. MORPHINE [Concomitant]
     Route: 065
  2. SENNA [Concomitant]
     Route: 065
  3. POTASSIUM CHLORIDE [Concomitant]
     Dosage: 20 MILLIEQUIVALENTS
     Route: 048
  4. SENOKOT [Concomitant]
     Route: 065
  5. TOPROL-XL [Concomitant]
     Dosage: 50 MILLIGRAM
     Route: 048
  6. NOVOLOG [Concomitant]
     Dosage: 25 UNITS
     Route: 058
  7. LORTAB [Concomitant]
     Route: 065
  8. COMPAZINE [Concomitant]
     Route: 065
  9. PROMETHAZINE [Concomitant]
     Route: 065
  10. SIMVASTATIN [Concomitant]
     Route: 065
  11. UROXATRAL [Concomitant]
     Route: 065
  12. ZOLOFT [Concomitant]
     Route: 065
  13. PHENERGAN HCL [Concomitant]
     Dosage: 12.5 MILLIGRAM
     Route: 065
  14. IMDUR [Concomitant]
     Dosage: 30 MILLIGRAM
     Route: 048
  15. POTASSIUM CHLORIDE [Concomitant]
     Route: 065
  16. CARISOPRODOL [Concomitant]
     Dosage: 350 MILLIGRAM
     Route: 048
  17. ALLOPURINOL [Concomitant]
     Dosage: 300 MILLIGRAM
     Route: 048
  18. FOLIC ACID [Concomitant]
     Route: 065
  19. PEPCID [Concomitant]
     Route: 065
  20. SOTALOL HCL [Concomitant]
     Route: 065
  21. DOXYCYCLINE [Concomitant]
     Route: 048
  22. EXFORGE [Concomitant]
     Dosage: 10/325MG
     Route: 048
  23. FERROUS SULFATE TAB [Concomitant]
     Route: 065
  24. SOMA [Concomitant]
     Route: 065
  25. LEVEMIR [Concomitant]
     Dosage: 70 UNITS
     Route: 058
  26. DEXAMETHASONE [Concomitant]
     Route: 065
  27. HUMALOG [Concomitant]
     Route: 065
  28. LANOXIN [Concomitant]
     Dosage: .125 MILLIGRAM
     Route: 048
  29. REVLIMID [Suspect]
     Indication: MULTIPLE MYELOMA
     Dosage: 25 MILLIGRAM
     Route: 048
     Dates: start: 20110106
  30. LASIX [Concomitant]
     Dosage: 40 MILLIGRAM
     Route: 048
  31. LEVEMIR [Concomitant]
     Dosage: 60 UNITS
     Route: 058

REACTIONS (1)
  - ATRIAL FIBRILLATION [None]
